FAERS Safety Report 5733747-5 (Version None)
Quarter: 2008Q2

REPORT INFORMATION
  Report Type: 
  Country: None (occurrence: None)
  Receive Date: 20080509
  Receipt Date: 20080429
  Transmission Date: 20081010
  Serious: Yes (Other)
  Sender: FDA-Public Use
  Company Number: US-PFIZER INC-2008037733

PATIENT
  Sex: Male

DRUGS (10)
  1. CELEBREX [Suspect]
     Indication: INFLAMMATION
     Dates: start: 20050101, end: 20071201
  2. NEURONTIN [Suspect]
     Indication: NERVE INJURY
  3. BEXTRA [Suspect]
     Indication: INFLAMMATION
     Dates: start: 20040101, end: 20050101
  4. OXYCONTIN [Concomitant]
  5. TORADOL [Concomitant]
  6. VIOXX [Concomitant]
  7. FLEXERIL [Concomitant]
     Indication: MUSCLE RELAXANT THERAPY
  8. SOMA [Concomitant]
     Indication: MUSCLE RELAXANT THERAPY
  9. PRILOSEC [Concomitant]
     Indication: HIATUS HERNIA
  10. LORTAB [Concomitant]

REACTIONS (7)
  - CHONDROPATHY [None]
  - DERMATITIS [None]
  - EAR PAIN [None]
  - GAIT DISTURBANCE [None]
  - MASS [None]
  - NEOPLASM [None]
  - SKIN DISORDER [None]
